FAERS Safety Report 6585094-X (Version None)
Quarter: 2010Q1

REPORT INFORMATION
  Report Type: 
  Country: None (occurrence: None)
  Receive Date: 20100217
  Receipt Date: 20100205
  Transmission Date: 20100710
  Serious: Yes (Life-Threatening, Hospitalization)
  Sender: FDA-Public Use
  Company Number: FI-PFIZER INC-2010015312

PATIENT
  Age: 63 Year
  Sex: Male

DRUGS (4)
  1. SUTENT [Suspect]
     Indication: RENAL CANCER METASTATIC
     Dosage: 37.5 MG, 1X/DAY
     Route: 048
     Dates: start: 20091019, end: 20100127
  2. ZOMETA [Suspect]
     Indication: METASTASIS
     Dosage: 4 MG, UNK
     Route: 042
     Dates: start: 20100127, end: 20100127
  3. AMLODIPINE [Concomitant]
     Indication: HYPERTENSION
     Dosage: 5 MG, 1X/DAY
     Route: 048
  4. LISIPRIL COMP [Concomitant]
     Indication: HYPERTENSION
     Dosage: 20 MG/ 12.5 MG
     Route: 048

REACTIONS (4)
  - CARDIAC ARREST [None]
  - MYOCARDIAL INFARCTION [None]
  - RESPIRATORY ARREST [None]
  - VENTRICULAR FIBRILLATION [None]
